FAERS Safety Report 21712802 (Version 1)
Quarter: 2022Q4

REPORT INFORMATION
  Report Type: Spontaneous
  Country: US (occurrence: US)
  Receive Date: 20221212
  Receipt Date: 20221212
  Transmission Date: 20230113
  Serious: No
  Sender: FDA-Public Use
  Company Number: US-SA-SAC20221209000267

PATIENT
  Sex: Male

DRUGS (7)
  1. DUPIXENT [Suspect]
     Active Substance: DUPILUMAB
     Indication: Dermatitis atopic
     Dosage: 300 MG, QM
     Route: 058
  2. CLONIDINE [Concomitant]
     Active Substance: CLONIDINE
     Dosage: 10 MG
  3. MELATONIN [Concomitant]
     Active Substance: MELATONIN
     Dosage: 10 MG
  4. RITALIN [Concomitant]
     Active Substance: METHYLPHENIDATE HYDROCHLORIDE
     Dosage: 10 MG
  5. SINGULAIR [Concomitant]
     Active Substance: MONTELUKAST SODIUM
     Dosage: 10 MG
  6. ZYRTEC [Concomitant]
     Active Substance: CETIRIZINE HYDROCHLORIDE
     Dosage: 10MG
  7. TRIAMCINOLON [TRIAMCINOLONE ACETONIDE] [Concomitant]

REACTIONS (2)
  - Ear infection [Unknown]
  - Sinusitis [Unknown]
